FAERS Safety Report 5131626-8 (Version None)
Quarter: 2006Q4

REPORT INFORMATION
  Report Type: 
  Country: None (occurrence: None)
  Receive Date: 20061016
  Receipt Date: 20061010
  Transmission Date: 20070319
  Serious: Yes (Other)
  Sender: FDA-Public Use
  Company Number: CAWYE901612SEP06

PATIENT
  Age: 26 Year
  Sex: Female

DRUGS (2)
  1. EFFEXOR XR [Suspect]
     Dosage: 112.5 MG OD; ORAL
     Route: 048
  2. SALBUTAMOL [Concomitant]

REACTIONS (1)
  - RENAL CYST [None]
